FAERS Safety Report 19771650 (Version 3)
Quarter: 2021Q4

REPORT INFORMATION
  Report Type: Spontaneous
  Country: US (occurrence: US)
  Receive Date: 20210901
  Receipt Date: 20211206
  Transmission Date: 20220303
  Serious: Yes (Hospitalization, Other)
  Sender: FDA-Public Use
  Company Number: US-PFIZER INC-2020154948

PATIENT
  Age: 70 Year
  Sex: Male
  Weight: 75.75 kg

DRUGS (3)
  1. CHANTIX [Suspect]
     Active Substance: VARENICLINE TARTRATE
     Indication: Smoking cessation therapy
     Dosage: 2 DF, DAILY (STARTED WITH STARTER PACK, 2 PILLS A DAY FOR 30 DAYS AND THEN WENT UP TO 1 PILL A DAY)
  2. CHANTIX [Suspect]
     Active Substance: VARENICLINE TARTRATE
     Dosage: 1 DF, DAILY (STARTED WITH STARTER PACK, 2 PILLS A DAY FOR 30 DAYS AND THEN WENT UP TO 1 PILL A DAY)
  3. CHANTIX [Suspect]
     Active Substance: VARENICLINE TARTRATE
     Dosage: 1 MG, 2X/DAY
     Dates: start: 2020, end: 202107

REACTIONS (6)
  - Tongue neoplasm [Unknown]
  - Neoplasm malignant [Unknown]
  - Breast cancer [Not Recovered/Not Resolved]
  - Lymphadenopathy [Not Recovered/Not Resolved]
  - Off label use [Unknown]
  - Product use issue [Unknown]

NARRATIVE: CASE EVENT DATE: 20210801
